FAERS Safety Report 7035168-4 (Version None)
Quarter: 2010Q4

REPORT INFORMATION
  Report Type: 
  Country: None (occurrence: None)
  Receive Date: 20101008
  Receipt Date: 20101001
  Transmission Date: 20110411
  Serious: Yes (Other)
  Sender: FDA-Public Use
  Company Number: PL-BAYER-201040742GPV

PATIENT
  Age: 22 Year
  Sex: Female
  Weight: 53 kg

DRUGS (2)
  1. BETAFERON [Suspect]
     Indication: MULTIPLE SCLEROSIS
     Route: 058
     Dates: start: 20100801
  2. BETAFERON [Suspect]
     Route: 058
     Dates: start: 20080214, end: 20090701

REACTIONS (3)
  - INJECTION SITE ERYTHEMA [None]
  - SKIN DISORDER [None]
  - SKIN NECROSIS [None]
